FAERS Safety Report 14320068 (Version 14)
Quarter: 2019Q1

REPORT INFORMATION
  Report Type: Spontaneous
  Country: US (occurrence: US)
  Receive Date: 20171222
  Receipt Date: 20190226
  Transmission Date: 20190417
  Serious: Yes (Other)
  Sender: FDA-Public Use
  Company Number: US-PFIZER INC-2017541886

PATIENT
  Age: 68 Year
  Sex: Female
  Weight: 75 kg

DRUGS (4)
  1. CELEXA [Concomitant]
     Active Substance: CITALOPRAM HYDROBROMIDE
     Indication: DEPRESSION
     Dosage: 40 MG, DAILY
  2. XELJANZ XR [Suspect]
     Active Substance: TOFACITINIB CITRATE
     Indication: RHEUMATOID ARTHRITIS
  3. MELOXICAM. [Concomitant]
     Active Substance: MELOXICAM
     Indication: ANTIINFLAMMATORY THERAPY
     Dosage: 10 MG, DAILY
     Dates: start: 201710
  4. XELJANZ XR [Suspect]
     Active Substance: TOFACITINIB CITRATE
     Indication: OSTEOARTHRITIS
     Dosage: 11 MG, 1X/DAY
     Route: 048
     Dates: start: 201701

REACTIONS (10)
  - Feeling abnormal [Unknown]
  - Pain in extremity [Unknown]
  - Product dose omission [Unknown]
  - Weight increased [Not Recovered/Not Resolved]
  - Pain [Unknown]
  - Malaise [Unknown]
  - Arthralgia [Unknown]
  - Arthritis infective [Recovered/Resolved]
  - Musculoskeletal pain [Unknown]
  - Respiratory tract infection [Unknown]

NARRATIVE: CASE EVENT DATE: 201709
